FAERS Safety Report 16073273 (Version 1)
Quarter: 2019Q1

REPORT INFORMATION
  Report Type: Other
  Country: None (occurrence: US)
  Receive Date: 20190314
  Receipt Date: 20190314
  Transmission Date: 20190418
  Serious: Yes (Death, Hospitalization)
  Sender: FDA-Public Use
  Company Number: US-MEDAC PHARMA, INC.-2063993

PATIENT
  Age: 31 Month
  Sex: Male
  Weight: 10.5 kg

DRUGS (6)
  1. DEXAMETHASONE. [Suspect]
     Active Substance: DEXAMETHASONE
  2. METHOTREXATE. [Suspect]
     Active Substance: METHOTREXATE
  3. ETOPOSIDE. [Suspect]
     Active Substance: ETOPOSIDE
  4. CYCLOPHOSPHAMIDE. [Suspect]
     Active Substance: CYCLOPHOSPHAMIDE
  5. VINCRISTINE SULFATE. [Suspect]
     Active Substance: VINCRISTINE SULFATE
  6. ONCASPAR [Suspect]
     Active Substance: PEGASPARGASE

REACTIONS (8)
  - Opportunistic infection [Fatal]
  - Hypotension [Unknown]
  - Tachycardia [Unknown]
  - Bradycardia [Unknown]
  - Oxygen saturation decreased [Unknown]
  - Pyrexia [Unknown]
  - Pneumonia [Fatal]
  - Tachypnoea [Unknown]

NARRATIVE: CASE EVENT DATE: 20161116
